FAERS Safety Report 4815124-4 (Version None)
Quarter: 2005Q4

REPORT INFORMATION
  Report Type: 
  Country: None (occurrence: None)
  Receive Date: 20051028
  Receipt Date: 20050711
  Transmission Date: 20060501
  Serious: Yes (Other)
  Sender: FDA-Public Use
  Company Number: GB-AVENTIS-200516528GDDC

PATIENT
  Age: 38 Year
  Sex: Female

DRUGS (4)
  1. CLOMID [Suspect]
     Indication: ANOVULATORY CYCLE
     Dates: start: 20050207, end: 20050212
  2. CLOMID [Suspect]
     Indication: POLYCYSTIC OVARIES
     Dates: start: 20050207, end: 20050212
  3. FOLIC ACID [Concomitant]
     Dates: start: 20041001
  4. METFORMIN HCL [Concomitant]
     Indication: POLYCYSTIC OVARIES
     Dates: start: 20040901, end: 20041201

REACTIONS (3)
  - DRUG EXPOSURE DURING PREGNANCY [None]
  - INTRA-UTERINE DEATH [None]
  - PREGNANCY [None]
